FAERS Safety Report 8092932-0 (Version None)
Quarter: 2012Q1

REPORT INFORMATION
  Report Type: 
  Country: None (occurrence: None)
  Receive Date: 20120131
  Receipt Date: 20120116
  Transmission Date: 20120608
  Serious: Yes (Hospitalization)
  Sender: FDA-Public Use
  Company Number: GB-JNJFOC-20111000852

PATIENT
  Sex: Female

DRUGS (9)
  1. ABIRATERONE ACETATE [Suspect]
     Indication: BREAST CANCER METASTATIC
     Dosage: CONTINUOUS 28-DAY CYCLE
     Route: 048
     Dates: start: 20111004
  2. ASPIRIN [Concomitant]
     Indication: PRODUCT USED FOR UNKNOWN INDICATION
     Route: 065
  3. CELECOXIB [Concomitant]
     Indication: PRODUCT USED FOR UNKNOWN INDICATION
     Route: 065
  4. ABIRATERONE ACETATE [Suspect]
     Dosage: CONTINUOUS 28-DAY CYCLE
     Route: 048
     Dates: start: 20110728, end: 20110920
  5. BENDROFLUAZIDE [Concomitant]
     Indication: PRODUCT USED FOR UNKNOWN INDICATION
     Route: 065
  6. HYDROCORTISONE [Concomitant]
     Indication: PRODUCT USED FOR UNKNOWN INDICATION
     Dosage: DOSE: 20/40MG; 40MG IN THE MORNING; 20MG IN THE EVENING.
     Route: 065
  7. AMLODIPINE [Concomitant]
     Indication: PRODUCT USED FOR UNKNOWN INDICATION
     Route: 065
  8. OMEPRAZOLE [Concomitant]
     Indication: PRODUCT USED FOR UNKNOWN INDICATION
     Route: 065
  9. EPLERENONE [Concomitant]
     Indication: PRODUCT USED FOR UNKNOWN INDICATION
     Route: 065

REACTIONS (1)
  - DYSPNOEA [None]
